FAERS Safety Report 6046558-0 (Version None)
Quarter: 2009Q1

REPORT INFORMATION
  Report Type: 
  Country: None (occurrence: None)
  Receive Date: 20090122
  Receipt Date: 20090112
  Transmission Date: 20090719
  Serious: Yes (Other)
  Sender: FDA-Public Use
  Company Number: PHEH2008US10992

PATIENT
  Sex: Female
  Weight: 59.864 kg

DRUGS (6)
  1. RECLAST [Suspect]
     Indication: OSTEOPOROSIS
     Dosage: 5 MG, ONCE A YEAR
     Dates: start: 20080915, end: 20080915
  2. ATENOLOL [Concomitant]
     Indication: HYPERTENSION
     Dosage: 50 MG, QD
  3. LOSARTAN POTASSIUM [Concomitant]
     Indication: HYPERTENSION
     Dosage: 50 MG, QD
     Dates: end: 20081114
  4. ASPIRIN [Concomitant]
     Dosage: 325 MG, QD
  5. FLONASE [Concomitant]
  6. SIMVASTATIN [Concomitant]
     Dosage: UNK
     Dates: start: 20080714

REACTIONS (2)
  - AORTIC VALVE INCOMPETENCE [None]
  - MALIGNANT HYPERTENSION [None]
